FAERS Safety Report 12388716 (Version 3)
Quarter: 2016Q3

REPORT INFORMATION
  Report Type: Spontaneous
  Country: AU (occurrence: AU)
  Receive Date: 20160520
  Receipt Date: 20160917
  Transmission Date: 20161109
  Serious: Yes (Hospitalization, Other)
  Sender: FDA-Public Use
  Company Number: AU-AMGEN-AUSSP2016063873

PATIENT
  Age: 75 Year
  Sex: Female
  Weight: 65 kg

DRUGS (9)
  1. ENBREL [Suspect]
     Active Substance: ETANERCEPT
     Indication: RHEUMATOID ARTHRITIS
     Dosage: 50 MG, FORTNIGHTLY
     Route: 065
     Dates: start: 2013, end: 201511
  2. PERINDOPRIL [Concomitant]
     Active Substance: PERINDOPRIL
     Dosage: 8 MG, 1X/DAY
  3. NORMISON [Concomitant]
     Active Substance: TEMAZEPAM
     Dosage: 10 MG, 1X/DAY
  4. ASPIRIN. [Concomitant]
     Active Substance: ASPIRIN
     Dosage: 100 MG, 1X/DAY
  5. HIPREX [Concomitant]
     Active Substance: METHENAMINE HIPPURATE
     Dosage: 1 G, 2X/DAY
  6. PROLIA [Concomitant]
     Active Substance: DENOSUMAB
     Dosage: 1 DF, 60MG/ML EVERY 6 MONTHS
  7. DIAZEPAM. [Concomitant]
     Active Substance: DIAZEPAM
     Dosage: 0.5 TO 1 TABLET (5MG) AS NEEDED
  8. NEXIUM [Concomitant]
     Active Substance: ESOMEPRAZOLE MAGNESIUM
     Dosage: 20 MG, 1X/DAY IN THE MORNING
  9. COVERSYL [Concomitant]
     Active Substance: PERINDOPRIL
     Dosage: UNK
     Dates: end: 20151128

REACTIONS (9)
  - Platelet count decreased [Recovered/Resolved]
  - Enteritis infectious [Recovered/Resolved]
  - Abasia [Recovered/Resolved]
  - Sepsis [Recovered/Resolved]
  - Asthenia [Not Recovered/Not Resolved]
  - White blood cell count decreased [Recovered/Resolved]
  - Colitis [Recovered/Resolved]
  - Blood pressure decreased [Not Recovered/Not Resolved]
  - Neutrophil count decreased [Recovered/Resolved]

NARRATIVE: CASE EVENT DATE: 201501
